FAERS Safety Report 13323360 (Version 1)
Quarter: 2017Q1

REPORT INFORMATION
  Report Type: Report from Study
  Country: FR (occurrence: FR)
  Receive Date: 20170310
  Receipt Date: 20170310
  Transmission Date: 20170428
  Serious: Yes (Other)
  Sender: FDA-Public Use
  Company Number: FR-GILEAD-2017-0261590

PATIENT

DRUGS (1)
  1. EMTRICITABINE/TENOFOVIR DISOPROXIL FUMARATE [Suspect]
     Active Substance: EMTRICITABINE\TENOFOVIR DISOPROXIL FUMARATE
     Indication: PRODUCT USED FOR UNKNOWN INDICATION
     Dosage: UNK
     Route: 065
     Dates: start: 201702

REACTIONS (7)
  - Cervical cord compression [Unknown]
  - Congenital spinal fusion [Unknown]
  - Muscle disorder [Unknown]
  - Inappropriate schedule of drug administration [Unknown]
  - CD8 lymphocytes increased [Unknown]
  - Neck pain [Unknown]
  - Back pain [Unknown]
